FAERS Safety Report 22053079 (Version 1)
Quarter: 2023Q1

REPORT INFORMATION
  Report Type: Report from Study
  Country: US (occurrence: US)
  Receive Date: 20230302
  Receipt Date: 20230302
  Transmission Date: 20230417
  Serious: Yes (Hospitalization)
  Sender: FDA-Public Use
  Company Number: US-ASTELLAS-2023US006933

PATIENT
  Age: 15 Year
  Sex: Male

DRUGS (1)
  1. GILTERITINIB [Suspect]
     Active Substance: GILTERITINIB
     Indication: Acute myeloid leukaemia
     Route: 048
     Dates: start: 20230218

REACTIONS (3)
  - Decreased appetite [Unknown]
  - Vomiting [Unknown]
  - Underdose [Unknown]

NARRATIVE: CASE EVENT DATE: 20230218
